FAERS Safety Report 15482963 (Version 1)
Quarter: 2018Q4

REPORT INFORMATION
  Report Type: Spontaneous
  Country: US (occurrence: US)
  Receive Date: 20181010
  Receipt Date: 20181010
  Transmission Date: 20190205
  Serious: No
  Sender: FDA-Public Use
  Company Number: US-PFIZER INC-2018406878

PATIENT
  Sex: Male

DRUGS (1)
  1. VIAGRA [Suspect]
     Active Substance: SILDENAFIL CITRATE
     Indication: LARGE INTESTINAL STENOSIS
     Dosage: 100 MG, 1X/DAY (1 PILL A DAY)

REACTIONS (1)
  - Drug effective for unapproved indication [Unknown]
